FAERS Safety Report 9781288 (Version 3)
Quarter: 2015Q3

REPORT INFORMATION
  Report Type: Spontaneous
  Country: US (occurrence: US)
  Receive Date: 20131224
  Receipt Date: 20150721
  Transmission Date: 20151125
  Serious: No
  Sender: FDA-Public Use
  Company Number: US-GILEAD-2010-0030626

PATIENT
  Sex: Female

DRUGS (11)
  1. CREON 24 [Concomitant]
     Active Substance: AMYLASE\LIPASE\PROTEASE
  2. SYMBICORT [Concomitant]
     Active Substance: BUDESONIDE\FORMOTEROL FUMARATE DIHYDRATE
  3. SOURCE CF CHEWABLES [Concomitant]
  4. OSCAL [Concomitant]
     Active Substance: CALCIUM CARBONATE
  5. ZITHROMAX [Concomitant]
     Active Substance: AZITHROMYCIN DIHYDRATE
  6. PULMOZYME [Concomitant]
     Active Substance: DORNASE ALFA
  7. PREVACID [Concomitant]
     Active Substance: LANSOPRAZOLE
  8. VERAMYST [Concomitant]
     Active Substance: FLUTICASONE FUROATE
  9. XOPENEX HFA [Concomitant]
     Active Substance: LEVALBUTEROL TARTRATE
  10. HYPERTONIC SALINE [Concomitant]
  11. CAYSTON [Suspect]
     Active Substance: AZTREONAM
     Indication: CYSTIC FIBROSIS
     Dates: start: 20100429

REACTIONS (1)
  - Tendonitis [Unknown]
